FAERS Safety Report 17502974 (Version 1)
Quarter: 2020Q1

REPORT INFORMATION
  Report Type: Spontaneous
  Country: US (occurrence: US)
  Receive Date: 20200225
  Receipt Date: 20200225
  Transmission Date: 20200409
  Serious: Yes (Hospitalization)
  Sender: FDA-Public Use
  Company Number: None

PATIENT
  Age: 17 Year
  Sex: Male
  Weight: 53.98 kg

DRUGS (6)
  1. LAMOTRIGINE. [Concomitant]
     Active Substance: LAMOTRIGINE
  2. TRILEPTAL [Concomitant]
     Active Substance: OXCARBAZEPINE
  3. LAMICTAL XR [Suspect]
     Active Substance: LAMOTRIGINE
     Indication: EPILEPSY
     Route: 048
  4. LAMICTAL [Suspect]
     Active Substance: LAMOTRIGINE
  5. LAMOTRIGINE EXTENDED RELEASE [Concomitant]
     Active Substance: LAMOTRIGINE
  6. DIASTAT PRN [Concomitant]

REACTIONS (4)
  - Rash [None]
  - Product substitution issue [None]
  - Seizure [None]
  - Adverse drug reaction [None]

NARRATIVE: CASE EVENT DATE: 2011
